FAERS Safety Report 6651408-5 (Version None)
Quarter: 2010Q1

REPORT INFORMATION
  Report Type: 
  Country: None (occurrence: None)
  Receive Date: 20100325
  Receipt Date: 20100312
  Transmission Date: 20100710
  Serious: Yes (Hospitalization)
  Sender: FDA-Public Use
  Company Number: FR-ROCHE-682218

PATIENT
  Sex: Male
  Weight: 75.8 kg

DRUGS (12)
  1. METHOXY POLYETHYLENE GLYCOL-EPOETIN BETA [Suspect]
     Dosage: FORM: PRE-FILLED SYRINGE
     Route: 042
  2. METHOXY POLYETHYLENE GLYCOL-EPOETIN BETA [Suspect]
     Dosage: DATE OF LAST DOSE PROIR TO SAE: 03 JANUARY 2010
     Route: 042
     Dates: start: 20090324
  3. CORDARONE [Concomitant]
     Dates: start: 19980101
  4. PREVISCAN [Concomitant]
     Dates: start: 19980101
  5. ATARAX [Concomitant]
     Dosage: DRUG REPORTED AS ATARAX 25
     Dates: end: 20090921
  6. ZOCOR [Concomitant]
     Dosage: DRUG REPORTED AS ZOCOR 20
  7. OROCAL [Concomitant]
  8. LASIX [Concomitant]
  9. TEMESTA [Concomitant]
     Dates: end: 20090701
  10. OMEPRAZOLE [Concomitant]
  11. PARACETAMOL [Concomitant]
  12. IMOVANE [Concomitant]

REACTIONS (1)
  - SEPSIS [None]
